FAERS Safety Report 20142857 (Version 5)
Quarter: 2022Q3

REPORT INFORMATION
  Report Type: Spontaneous
  Country: FR (occurrence: FR)
  Receive Date: 20211202
  Receipt Date: 20220915
  Transmission Date: 20221027
  Serious: Yes (Hospitalization, Disabling, Other)
  Sender: FDA-Public Use
  Company Number: FR-BAXTER-2021BAX037836

PATIENT
  Sex: Female

DRUGS (14)
  1. CYCLOPHOSPHAMIDE [Suspect]
     Active Substance: CYCLOPHOSPHAMIDE
     Indication: Antisynthetase syndrome
     Dosage: 700 MG/M2, FIRST CYCLE
     Route: 042
     Dates: start: 20130503
  2. CYCLOPHOSPHAMIDE [Suspect]
     Active Substance: CYCLOPHOSPHAMIDE
     Dosage: 700 MG/M3, SECOND CYCLE
     Route: 042
     Dates: start: 20130605
  3. CYCLOPHOSPHAMIDE [Suspect]
     Active Substance: CYCLOPHOSPHAMIDE
     Dosage: 1 G, MONTHLY DOSE DECREASED, 3RD CYCLE
     Route: 042
     Dates: start: 20130709
  4. CYCLOPHOSPHAMIDE [Suspect]
     Active Substance: CYCLOPHOSPHAMIDE
     Dosage: UNK, 4TH INFUSION
     Route: 042
     Dates: start: 20131030
  5. CYCLOPHOSPHAMIDE [Suspect]
     Active Substance: CYCLOPHOSPHAMIDE
     Dosage: 1G
     Route: 042
  6. CYCLOPHOSPHAMIDE [Suspect]
     Active Substance: CYCLOPHOSPHAMIDE
     Dosage: 1 G, 6 TH CYCLE
     Route: 042
  7. METHOTREXATE [Suspect]
     Active Substance: METHOTREXATE
     Indication: Product used for unknown indication
     Dosage: 15 MG/WEEK
     Route: 065
     Dates: start: 200810, end: 200905
  8. SOLU-MEDROL [Suspect]
     Active Substance: METHYLPREDNISOLONE SODIUM SUCCINATE
     Indication: Antisynthetase syndrome
     Dosage: 500 MG, QD
     Route: 040
     Dates: start: 20131028
  9. SOLU-MEDROL [Suspect]
     Active Substance: METHYLPREDNISOLONE SODIUM SUCCINATE
     Dosage: 500 MG, QD
     Route: 040
     Dates: start: 20131029
  10. SOLU-MEDROL [Suspect]
     Active Substance: METHYLPREDNISOLONE SODIUM SUCCINATE
     Dosage: 500 MG, QD
     Route: 040
     Dates: start: 20131030
  11. PREDNISONE [Suspect]
     Active Substance: PREDNISONE
     Indication: Antisynthetase syndrome
     Dosage: 1 MG/KG
     Route: 065
     Dates: start: 20131028
  12. PREDNISONE [Suspect]
     Active Substance: PREDNISONE
     Dosage: 1 MG/KG
     Route: 065
     Dates: start: 20131029
  13. PREDNISONE [Suspect]
     Active Substance: PREDNISONE
     Dosage: 1 MG/KG
     Route: 065
     Dates: start: 20131030
  14. PREDNISONE [Suspect]
     Active Substance: PREDNISONE
     Dosage: UNK
     Route: 065

REACTIONS (25)
  - Device breakage [Unknown]
  - Drug intolerance [Unknown]
  - Abdominal pain upper [Unknown]
  - Vomiting [Unknown]
  - Dehydration [Unknown]
  - Pulmonary fibrosis [Unknown]
  - Respiratory failure [Unknown]
  - Chronic respiratory failure [Unknown]
  - Gastrointestinal disorder [Unknown]
  - Pulmonary hypertension [Unknown]
  - Nosocomial infection [Unknown]
  - Aphthous ulcer [Unknown]
  - Dry skin [Unknown]
  - Eyelid oedema [Unknown]
  - Restrictive pulmonary disease [Unknown]
  - Blood carbon monoxide decreased [Unknown]
  - Emphysema [Unknown]
  - Condition aggravated [Unknown]
  - Decreased appetite [Unknown]
  - Asthenia [Unknown]
  - Vision blurred [Unknown]
  - Pruritus [Unknown]
  - Mucosal inflammation [Unknown]
  - Dyspnoea [Unknown]
  - Bronchitis viral [Unknown]

NARRATIVE: CASE EVENT DATE: 20130101
